FAERS Safety Report 17872372 (Version 1)
Quarter: 2020Q2

REPORT INFORMATION
  Report Type: Spontaneous
  Country: US (occurrence: US)
  Receive Date: 20200608
  Receipt Date: 20200608
  Transmission Date: 20200714
  Serious: Yes (Other)
  Sender: FDA-Public Use
  Company Number: NVSC2020US158872

PATIENT
  Age: 57 Year
  Sex: Male

DRUGS (1)
  1. PAZOPANIB [Suspect]
     Active Substance: PAZOPANIB
     Indication: CHONDROSARCOMA METASTATIC
     Dosage: UNK, QD
     Route: 065

REACTIONS (3)
  - Hypertension [Unknown]
  - Hypothyroidism [Unknown]
  - Product use in unapproved indication [Unknown]
